APPROVED DRUG PRODUCT: LORATADINE
Active Ingredient: LORATADINE
Strength: 10MG
Dosage Form/Route: TABLET;ORAL
Application: A076301 | Product #001
Applicant: L PERRIGO CO
Approved: Jun 25, 2004 | RLD: No | RS: No | Type: OTC